FAERS Safety Report 8300075-3 (Version None)
Quarter: 2012Q2

REPORT INFORMATION
  Report Type: 
  Country: None (occurrence: None)
  Receive Date: 20120420
  Receipt Date: 20120416
  Transmission Date: 20120825
  Serious: No
  Sender: FDA-Public Use
  Company Number: US-PFIZER INC-2012095205

PATIENT
  Sex: Female

DRUGS (6)
  1. NORVASC [Suspect]
     Dosage: UNK
  2. BACTRIM [Concomitant]
     Dosage: UNK
  3. CEFTIN [Concomitant]
     Dosage: UNK
  4. AMLODIPINE [Concomitant]
     Dosage: UNK
  5. ACCUPRIL [Concomitant]
     Dosage: UNK
  6. BENADRYL [Concomitant]
     Dosage: UNK

REACTIONS (3)
  - NAUSEA [None]
  - FATIGUE [None]
  - ASTHENIA [None]
